FAERS Safety Report 10830183 (Version 1)
Quarter: 2015Q1

REPORT INFORMATION
  Report Type: Report from Study
  Country: US (occurrence: US)
  Receive Date: 20150219
  Receipt Date: 20150219
  Transmission Date: 20150721
  Serious: No
  Sender: FDA-Public Use
  Company Number: US-ABBVIE-14P-163-1188033-00

PATIENT
  Sex: Female

DRUGS (2)
  1. HUMIRA [Suspect]
     Active Substance: ADALIMUMAB
     Indication: PSORIASIS
  2. PROVENTIL [Concomitant]
     Active Substance: ALBUTEROL
     Indication: ASTHMA
     Route: 055

REACTIONS (6)
  - Psoriasis [Unknown]
  - Fatigue [Unknown]
  - Malaise [Unknown]
  - Autoimmune thyroiditis [Unknown]
  - Oropharyngeal pain [Unknown]
  - Weight increased [Unknown]
